FAERS Safety Report 14881109 (Version 3)
Quarter: 2018Q2

REPORT INFORMATION
  Report Type: Spontaneous
  Country: FI (occurrence: FI)
  Receive Date: 20180511
  Receipt Date: 20180605
  Transmission Date: 20180711
  Serious: Yes (Hospitalization, Disabling, Other)
  Sender: FDA-Public Use
  Company Number: FI-BAUSCH-BL-2018-013226

PATIENT
  Age: 69 Year
  Sex: Male

DRUGS (33)
  1. ATIVAN [Suspect]
     Active Substance: LORAZEPAM
     Dosage: AS NEEDED
     Route: 065
  2. RISPERIDON ORION [Suspect]
     Active Substance: RISPERIDONE
     Dosage: 0MG PLUS 0MG PLUS 1MG DAILY (1 MG UNKNOWN)
     Route: 065
     Dates: start: 20180127, end: 20180129
  3. ZYPREXA [Suspect]
     Active Substance: OLANZAPINE
     Indication: PSYCHOTIC SYMPTOM
     Route: 065
  4. ATIVAN [Suspect]
     Active Substance: LORAZEPAM
     Dosage: AS NEEDED
     Route: 065
  5. DIAPAM (DIAZEPAM) [Suspect]
     Active Substance: DIAZEPAM
     Indication: PRODUCT USED FOR UNKNOWN INDICATION
     Dosage: 10 MG, TID
     Route: 065
     Dates: start: 20180126
  6. RISPERIDON ORION [Suspect]
     Active Substance: RISPERIDONE
     Dosage: 1 MG, QD (IN THE EVENINGS)
     Route: 065
     Dates: start: 20171231
  7. RISPERIDON ORION [Suspect]
     Active Substance: RISPERIDONE
     Route: 065
  8. SERENASE (HALOPERIDOL) [Suspect]
     Active Substance: HALOPERIDOL
     Dosage: UNK (2 X SERENASE 2,5 MG)
     Route: 065
     Dates: start: 20180129
  9. ZYPREXA [Suspect]
     Active Substance: OLANZAPINE
     Route: 065
  10. ATIVAN [Suspect]
     Active Substance: LORAZEPAM
     Dosage: AS NEEDED
     Route: 065
     Dates: start: 20180129
  11. ATIVAN [Suspect]
     Active Substance: LORAZEPAM
     Dosage: 2 MG, UNK (RESTLESS, DELUSIONAL)
     Route: 065
  12. RISPERIDON ORION [Suspect]
     Active Substance: RISPERIDONE
     Dosage: (4 MG, BID) 1MG PLUS 0MG PLUS 3MG
     Route: 065
     Dates: start: 20180114
  13. RISPERIDON ORION [Suspect]
     Active Substance: RISPERIDONE
     Dosage: 0MG PLUS 0MG PLUS 3MG DAILY (3 MG, EACH EVENING)
     Route: 065
     Dates: start: 20180115
  14. DIAPAM (DIAZEPAM) [Suspect]
     Active Substance: DIAZEPAM
     Dosage: 15 MG, QD
     Route: 065
  15. ATIVAN [Suspect]
     Active Substance: LORAZEPAM
     Indication: HALLUCINATION
     Dosage: AS NEEDED
     Route: 065
  16. RISPERIDON ORION [Suspect]
     Active Substance: RISPERIDONE
     Indication: HALLUCINATION, VISUAL
     Dosage: 2 MG, QD (0MG PLUS 0MG PLUS 2MG), 2 MG, EACH EVENING
     Route: 065
     Dates: start: 20180124
  17. RISPERIDON ORION [Suspect]
     Active Substance: RISPERIDONE
     Dosage: 3 MG, BID (1MG PLUS 0MG PLUS 2MG) DAILY (3 MG, EACH EVENING)
     Route: 065
     Dates: start: 20180107
  18. DIAPAM (DIAZEPAM) [Suspect]
     Active Substance: DIAZEPAM
     Dosage: 5MG PLUS 5MG PLUS 10MG (20 MG, UNKNOWN)
     Route: 065
     Dates: start: 20180129, end: 20180201
  19. ATIVAN [Suspect]
     Active Substance: LORAZEPAM
     Dosage: AS NEEDED
     Route: 065
     Dates: start: 20180129
  20. ATIVAN [Suspect]
     Active Substance: LORAZEPAM
     Indication: HALLUCINATION
     Dosage: AS NEEDED
     Route: 065
     Dates: start: 20180126
  21. ATIVAN [Suspect]
     Active Substance: LORAZEPAM
     Dosage: 4 MG, UNK
     Route: 065
  22. SERENASE (HALOPERIDOL) [Suspect]
     Active Substance: HALOPERIDOL
     Indication: HALLUCINATION
     Dosage: AS NEEDED
     Route: 065
     Dates: start: 20180126
  23. OLANZAPIN ORION [Suspect]
     Active Substance: OLANZAPINE
     Indication: PSYCHOTIC DISORDER
     Route: 065
     Dates: start: 20180124
  24. OLANZAPIN ORION [Suspect]
     Active Substance: OLANZAPINE
     Indication: HALLUCINATION, VISUAL
     Route: 065
     Dates: start: 20180131, end: 20180203
  25. ZYPREXA [Suspect]
     Active Substance: OLANZAPINE
     Route: 065
     Dates: start: 20180131, end: 20180203
  26. LEPONEX [Suspect]
     Active Substance: CLOZAPINE
     Indication: HALLUCINATION
     Route: 065
  27. LORAZEPAM. [Suspect]
     Active Substance: LORAZEPAM
     Dosage: 0.5 PLUS 0.5 PLUS 1MG
     Route: 065
     Dates: start: 20180201
  28. ATIVAN [Suspect]
     Active Substance: LORAZEPAM
     Dosage: 2 MG, TID (0,5+0,5+1)
     Route: 065
     Dates: start: 20180104
  29. LORAZEPAM. [Suspect]
     Active Substance: LORAZEPAM
     Indication: PRODUCT USED FOR UNKNOWN INDICATION
     Dosage: 0.5 PLUS 0.5 PLUS 1MG
     Route: 065
     Dates: start: 20180104
  30. LORAZEPAM. [Suspect]
     Active Substance: LORAZEPAM
     Dosage: 1MG PLUS 1MG PLUS 1MG
     Route: 065
     Dates: start: 20180107
  31. ATIVAN [Suspect]
     Active Substance: LORAZEPAM
     Dosage: 1MG+1MG+1MG
     Route: 065
     Dates: start: 20180107
  32. RISPERIDON ORION [Suspect]
     Active Substance: RISPERIDONE
     Indication: PSYCHOTIC SYMPTOM
     Dosage: 2 MG, EACH EVENING
     Route: 065
     Dates: start: 20180102
  33. OLANZAPIN ORION [Suspect]
     Active Substance: OLANZAPINE
     Route: 065
     Dates: start: 20180201

REACTIONS (6)
  - Parkinsonism [Unknown]
  - Parkinson^s disease [Recovering/Resolving]
  - Balance disorder [Recovering/Resolving]
  - Vascular dementia [Recovering/Resolving]
  - Dementia with Lewy bodies [Recovering/Resolving]
  - Hallucination [Recovering/Resolving]
